FAERS Safety Report 4351542-9 (Version None)
Quarter: 2004Q2

REPORT INFORMATION
  Report Type: 
  Country: None (occurrence: None)
  Receive Date: 20040428
  Receipt Date: 20040419
  Transmission Date: 20050107
  Serious: Yes (Death)
  Sender: FDA-Public Use
  Company Number: 202215

PATIENT
  Age: 44 Year
  Sex: Female
  Weight: 50.8 kg

DRUGS (8)
  1. CATHFLO ACTIVASE [Suspect]
     Indication: MEDICAL DEVICE COMPLICATION
     Dosage: 2 MG, INTRAVENOUS
     Route: 042
     Dates: start: 20030807
  2. VANCOMYCIN [Concomitant]
  3. LIDOCAIN (LIDOCAINE) [Concomitant]
  4. CATAPRES-TTS-1 [Concomitant]
  5. COREG [Concomitant]
  6. DILANTIN [Concomitant]
  7. LIBRIUM [Concomitant]
  8. RENAGEL [Concomitant]

REACTIONS (7)
  - BRADYCARDIA [None]
  - CARDIAC ARREST [None]
  - COMA [None]
  - ELECTROMECHANICAL DISSOCIATION [None]
  - NAUSEA [None]
  - RESPIRATION ABNORMAL [None]
  - THERAPY NON-RESPONDER [None]
